FAERS Safety Report 16264646 (Version 1)
Quarter: 2019Q2

REPORT INFORMATION
  Report Type: Spontaneous
  Country: US (occurrence: US)
  Receive Date: 20190502
  Receipt Date: 20190502
  Transmission Date: 20190711
  Serious: No
  Sender: FDA-Public Use
  Company Number: US-PFIZER INC-2019182956

PATIENT
  Age: 68 Year
  Sex: Female
  Weight: 78.5 kg

DRUGS (2)
  1. PREGABALIN. [Suspect]
     Active Substance: PREGABALIN
     Indication: NEURALGIA
     Dosage: 50 MG, DAILY(50 MG TAKE 1 CAP PO DAILY)
     Route: 048
     Dates: start: 20190418
  2. GABAPENTIN. [Suspect]
     Active Substance: GABAPENTIN
     Dosage: 100 MG, 3X/DAY(100 MG 1 TAB PO TID)
     Dates: start: 20190418

REACTIONS (1)
  - Therapeutic product effect incomplete [Unknown]
